FAERS Safety Report 7157242-4 (Version None)
Quarter: 2010Q4

REPORT INFORMATION
  Report Type: 
  Country: None (occurrence: None)
  Receive Date: 20101214
  Receipt Date: 20091211
  Transmission Date: 20110411
  Serious: No
  Sender: FDA-Public Use
  Company Number: US-ASTRAZENECA-2009SE31535

PATIENT
  Age: 26222 Day
  Sex: Female

DRUGS (2)
  1. CRESTOR [Suspect]
     Route: 048
     Dates: start: 20091201
  2. OYSTER SHELL CALCIUM [Concomitant]

REACTIONS (1)
  - SEBORRHOEA [None]
